FAERS Safety Report 9678384 (Version 1)
Quarter: 2013Q4

REPORT INFORMATION
  Report Type: Spontaneous
  Country: US (occurrence: US)
  Receive Date: 20131108
  Receipt Date: 20131108
  Transmission Date: 20140711
  Serious: No
  Sender: FDA-Public Use
  Company Number: US-UPSHER-SMITH LABORATORIES, INC.-13002712

PATIENT
  Age: 78 Year
  Sex: Male

DRUGS (6)
  1. JANTOVEN [Suspect]
     Indication: CEREBROVASCULAR ACCIDENT
     Dosage: 5 MG, QD
     Route: 048
     Dates: start: 201305, end: 201306
  2. JANTOVEN [Suspect]
     Dosage: 12.5 MG, QD
     Route: 048
     Dates: start: 201306, end: 201306
  3. JANTOVEN [Suspect]
     Dosage: 5 MG, QD
     Route: 048
     Dates: start: 201306
  4. ALLOPURINOL [Concomitant]
     Indication: GOUT
     Dosage: UNK
  5. GLIPIZIDE [Concomitant]
     Indication: DIABETES MELLITUS
     Dosage: UNK
  6. DIGOXIN [Concomitant]
     Indication: EXTRASYSTOLES
     Dosage: UNK

REACTIONS (1)
  - Blue toe syndrome [Recovering/Resolving]
